FAERS Safety Report 4263447-2 (Version None)
Quarter: 2004Q1

REPORT INFORMATION
  Report Type: 
  Country: None (occurrence: None)
  Receive Date: 20040104
  Receipt Date: 20040104
  Transmission Date: 20041129
  Serious: Yes (Hospitalization)
  Sender: FDA-Public Use
  Company Number: None

PATIENT
  Age: 43 Year
  Sex: Female
  Weight: 127.0072 kg

DRUGS (4)
  1. PRILOSEC [Suspect]
     Indication: BARRETT'S OESOPHAGUS
     Dosage: 40 MG TWICE DAIL ORAL
     Route: 048
     Dates: start: 20020103, end: 20020116
  2. PRILOSEC [Suspect]
     Indication: OESOPHAGITIS
     Dosage: 40 MG TWICE DAIL ORAL
     Route: 048
     Dates: start: 20020103, end: 20020116
  3. SYNTHROID [Concomitant]
  4. NUTRIMED MEAL REPLACMEMT SHAKE SUPPLEMENTS [Concomitant]

REACTIONS (22)
  - ABNORMAL BEHAVIOUR [None]
  - ANAEMIA [None]
  - ANXIETY [None]
  - ASTHENIA [None]
  - BALANCE DISORDER [None]
  - CHEST PAIN [None]
  - COGNITIVE DISORDER [None]
  - COMMUNICATION DISORDER [None]
  - DYSPNOEA [None]
  - FACIAL PALSY [None]
  - GAIT DISTURBANCE [None]
  - HEADACHE [None]
  - HEART RATE INCREASED [None]
  - HEMIPLEGIA [None]
  - HYPOAESTHESIA [None]
  - LOSS OF CONSCIOUSNESS [None]
  - MENTAL IMPAIRMENT [None]
  - MIGRAINE [None]
  - NECK PAIN [None]
  - PARAESTHESIA [None]
  - RED BLOOD CELL SEDIMENTATION RATE INCREASED [None]
  - SPEECH DISORDER [None]
